FAERS Safety Report 6285668-X (Version None)
Quarter: 2009Q3

REPORT INFORMATION
  Report Type: 
  Country: None (occurrence: None)
  Receive Date: 20090724
  Receipt Date: 20090709
  Transmission Date: 20100115
  Serious: Yes (Hospitalization)
  Sender: FDA-Public Use
  Company Number: ADE2009-0730

PATIENT
  Age: 71 Year
  Sex: Female

DRUGS (8)
  1. SERTRALINE [Suspect]
     Indication: DEPRESSED MOOD
     Dosage: 50MG, DAILY,
  2. AMISULPRIDE [Concomitant]
  3. DIAZEPAM [Concomitant]
  4. NICERGOLINE [Concomitant]
  5. AMLODIPINE [Concomitant]
  6. ASPIRIN [Concomitant]
  7. CANDESARTIN [Concomitant]
  8. ATENOLOL [Concomitant]

REACTIONS (1)
  - RHABDOMYOLYSIS [None]
